FAERS Safety Report 5415407-3 (Version None)
Quarter: 2007Q3

REPORT INFORMATION
  Report Type: 
  Country: None (occurrence: None)
  Receive Date: 20070813
  Receipt Date: 20070813
  Transmission Date: 20080115
  Serious: Yes (Hospitalization)
  Sender: FDA-Public Use
  Company Number: None

PATIENT
  Age: 72 Year
  Sex: Male

DRUGS (2)
  1. FUROSEMIDE [Suspect]
     Indication: HYPERTENSION
     Dosage: 40MG BID PO
     Route: 048
     Dates: start: 20070517, end: 20070809
  2. METOPROLOL SUCCINATE [Suspect]
     Indication: HYPERTENSION
     Dosage: 50MG EVERY DAY PO
     Route: 048
     Dates: start: 20070118, end: 20070809

REACTIONS (2)
  - DIARRHOEA [None]
  - HYPOTENSION [None]
